FAERS Safety Report 23604217 (Version 1)
Quarter: 2024Q1

REPORT INFORMATION
  Report Type: Spontaneous
  Country: SE (occurrence: SE)
  Receive Date: 20240307
  Receipt Date: 20240307
  Transmission Date: 20240409
  Serious: Yes (Hospitalization)
  Sender: FDA-Public Use
  Company Number: None

PATIENT

DRUGS (2)
  1. BUPROPION HYDROCHLORIDE [Suspect]
     Active Substance: BUPROPION HYDROCHLORIDE
     Indication: Product used for unknown indication
     Dosage: UNK
     Route: 064
  2. PREGABALIN [Concomitant]
     Active Substance: PREGABALIN
     Indication: Product used for unknown indication
     Dosage: UNK
     Route: 064

REACTIONS (6)
  - Drug withdrawal syndrome neonatal [Recovering/Resolving]
  - Agitation neonatal [Recovering/Resolving]
  - Irritability [Recovering/Resolving]
  - Infantile vomiting [Recovering/Resolving]
  - Exaggerated startle response [Recovering/Resolving]
  - Foetal exposure during pregnancy [Recovering/Resolving]

NARRATIVE: CASE EVENT DATE: 20240228
